FAERS Safety Report 8518493 (Version 2)
Quarter: 2012Q4

REPORT INFORMATION
  Report Type: 
  Country: US (occurrence: US)
  Receive Date: 20120417
  Receipt Date: 20121120
  Transmission Date: 20130627
  Serious: No
  Sender: FDA-Public Use
  Company Number: US-ASTRAZENECA-2012SE13722

PATIENT
  Age: 58 Year
  Sex: Female

DRUGS (2)
  1. NEXIUM [Suspect]
     Route: 048
  2. OTHER 3 MEDS [Concomitant]

REACTIONS (4)
  - Gastric disorder [Unknown]
  - Adverse drug reaction [Unknown]
  - Diarrhoea [Unknown]
  - Abdominal pain upper [Unknown]
